FAERS Safety Report 20081911 (Version 1)
Quarter: 2021Q4

REPORT INFORMATION
  Report Type: Other
  Country: None (occurrence: US)
  Receive Date: 20211117
  Receipt Date: 20211117
  Transmission Date: 20220304
  Serious: No
  Sender: FDA-Public Use
  Company Number: US-Nexgen Pharma, Inc.-2121970

PATIENT
  Age: 72 Year
  Sex: Female
  Weight: 50 kg

DRUGS (23)
  1. ACETAMINOPHEN\BUTALBITAL [Suspect]
     Active Substance: ACETAMINOPHEN\BUTALBITAL
     Indication: Product used for unknown indication
     Route: 048
  2. REVLIMID [Concomitant]
     Active Substance: LENALIDOMIDE
  3. DEXAMETHASONE [Concomitant]
     Active Substance: DEXAMETHASONE
     Route: 048
  4. LISINOPRIL [Concomitant]
     Active Substance: LISINOPRIL
     Route: 048
  5. LYRICA [Concomitant]
     Active Substance: PREGABALIN
     Route: 048
  6. Adult Robitussin Peak-Unknown [Concomitant]
     Route: 048
  7. NINLARO [Concomitant]
     Active Substance: IXAZOMIB CITRATE
  8. CALCIUM [Concomitant]
     Active Substance: CALCIUM
     Route: 065
  9. PROCHLORPERAZINE MALEATE [Concomitant]
     Active Substance: PROCHLORPERAZINE MALEATE
     Route: 065
  10. UBIDECARENONE [Concomitant]
     Active Substance: UBIDECARENONE
     Route: 065
  11. COMPAZINE [Concomitant]
     Active Substance: PROCHLORPERAZINE MALEATE
     Route: 065
  12. DARZALEX [Concomitant]
     Active Substance: DARATUMUMAB
     Route: 065
  13. Glucosamine-chondroitin (sulfate) [Concomitant]
     Route: 065
  14. LEVAQUIN [Concomitant]
     Active Substance: LEVOFLOXACIN
     Route: 065
  15. LOMOTIL [Concomitant]
     Active Substance: ATROPINE SULFATE\DIPHENOXYLATE HYDROCHLORIDE
     Route: 065
  16. SYMBICORT [Concomitant]
     Active Substance: BUDESONIDE\FORMOTEROL FUMARATE DIHYDRATE
     Route: 065
  17. CYANOCOBALAMIN [Concomitant]
     Active Substance: CYANOCOBALAMIN
     Route: 065
  18. VITAMIN D3 [Concomitant]
     Active Substance: CHOLECALCIFEROL
     Route: 065
  19. Morphine (Variety Unknown) [Concomitant]
     Route: 050
  20. Coenzyme, unspecified [Concomitant]
     Route: 065
  21. NINLARO [Concomitant]
     Active Substance: IXAZOMIB CITRATE
     Route: 065
  22. BENZONATATE [Concomitant]
     Active Substance: BENZONATATE
     Route: 065
  23. WELCHOL [Concomitant]
     Active Substance: COLESEVELAM HYDROCHLORIDE
     Route: 048

REACTIONS (1)
  - Hepatic enzyme abnormal [Unknown]
